FAERS Safety Report 10398953 (Version 1)
Quarter: 2014Q3

REPORT INFORMATION
  Report Type: Report from Study
  Country: US (occurrence: US)
  Receive Date: 20140821
  Receipt Date: 20140821
  Transmission Date: 20150326
  Serious: Yes (Other)
  Sender: FDA-Public Use
  Company Number: PHEH2014US016346

PATIENT
  Age: 12 Year
  Sex: Female
  Weight: 31.75 kg

DRUGS (9)
  1. TOBI PODHALER [Suspect]
     Active Substance: TOBRAMYCIN
     Indication: CYSTIC FIBROSIS
     Dosage: 112 MG, TWICE A DAY
     Route: 055
     Dates: start: 201311
  2. ACTIGALL [Concomitant]
     Active Substance: URSODIOL
     Dosage: UKN
  3. PULMOZYME [Concomitant]
     Active Substance: DORNASE ALFA
     Dosage: UKN
  4. HYPERTONIC SALINE SOLUTION [Suspect]
     Active Substance: SODIUM CHLORIDE
     Dosage: UKN
  5. CREON [Concomitant]
     Active Substance: PANCRELIPASE AMYLASE\PANCRELIPASE LIPASE\PANCRELIPASE PROTEASE
     Dosage: UKN
  6. XOPENEX [Concomitant]
     Active Substance: LEVALBUTEROL HYDROCHLORIDE
     Dosage: UKN
  7. MULTIVIT//VITAMINS NOS [Concomitant]
     Active Substance: VITAMINS
     Dosage: UKN
  8. TOBI [Suspect]
     Active Substance: TOBRAMYCIN
     Indication: CYSTIC FIBROSIS
     Dosage: 300 MG PER 5 ML TWICE A DAY
     Route: 055
     Dates: end: 201311
  9. SPIRONOLACTONE. [Concomitant]
     Active Substance: SPIRONOLACTONE
     Dosage: UKN

REACTIONS (7)
  - Epistaxis [Not Recovered/Not Resolved]
  - Dry throat [Not Recovered/Not Resolved]
  - Chronic hepatic failure [Not Recovered/Not Resolved]
  - Dysphonia [Not Recovered/Not Resolved]
  - Overgrowth bacterial [Not Recovered/Not Resolved]
  - Secretion discharge [Not Recovered/Not Resolved]
  - Throat irritation [Not Recovered/Not Resolved]

NARRATIVE: CASE EVENT DATE: 201311
